FAERS Safety Report 4393205-X (Version None)
Quarter: 2004Q3

REPORT INFORMATION
  Report Type: 
  Country: None (occurrence: None)
  Receive Date: 20040701
  Receipt Date: 20040618
  Transmission Date: 20050211
  Serious: Yes (Hospitalization)
  Sender: FDA-Public Use
  Company Number: NO-JNJFOC-20040604685

PATIENT
  Age: 29 Year
  Sex: Female

DRUGS (5)
  1. REMICADE [Suspect]
     Indication: PSORIASIS
     Dosage: 300 MG, INTRAVENOUS
     Route: 042
     Dates: start: 20031001, end: 20040510
  2. METHOTREXATE [Concomitant]
  3. VENTOLIN [Concomitant]
  4. TRIONETTA (EUGYNON) [Concomitant]
  5. ELOCON [Concomitant]

REACTIONS (7)
  - ARTHRALGIA [None]
  - DIZZINESS [None]
  - DYSPNOEA [None]
  - ERYTHEMA [None]
  - FACE OEDEMA [None]
  - FEELING ABNORMAL [None]
  - GASTROENTERITIS [None]
